FAERS Safety Report 10041037 (Version 2)
Quarter: 2014Q1

REPORT INFORMATION
  Report Type: Spontaneous
  Country: US (occurrence: US)
  Receive Date: 20140327
  Receipt Date: 20140327
  Transmission Date: 20141002
  Serious: Yes (Other)
  Sender: FDA-Public Use
  Company Number: US-PFIZER INC-2014078246

PATIENT
  Age: 46 Year
  Sex: Female
  Weight: 64.85 kg

DRUGS (4)
  1. NEURONTIN [Suspect]
     Indication: BACK PAIN
     Dosage: 300 MG, 3X/DAY
     Route: 048
     Dates: start: 20140313, end: 20140315
  2. ALBUTEROL [Concomitant]
     Dosage: UNK
  3. ATIVAN [Concomitant]
     Indication: ANXIETY
     Dosage: UNK
  4. IBUPROFEN [Concomitant]
     Dosage: UNK

REACTIONS (7)
  - Cerebrovascular accident [Unknown]
  - Cardiac disorder [Unknown]
  - Muscular weakness [Unknown]
  - Eye movement disorder [Unknown]
  - Disorientation [Unknown]
  - Dyspnoea [Unknown]
  - Drug ineffective [Unknown]
